FAERS Safety Report 7493470-6 (Version None)
Quarter: 2011Q2

REPORT INFORMATION
  Report Type: 
  Country: None (occurrence: None)
  Receive Date: 20110520
  Receipt Date: 20110509
  Transmission Date: 20111010
  Serious: Yes (Hospitalization, Other)
  Sender: FDA-Public Use
  Company Number: US-BAYER-2011-039301

PATIENT
  Sex: Female

DRUGS (1)
  1. MIRENA [Suspect]
     Indication: CONTRACEPTION
     Dosage: 20 ?G, CONT
     Dates: start: 20110303, end: 20110505

REACTIONS (5)
  - PROCEDURAL HEADACHE [None]
  - OPERATIVE HAEMORRHAGE [None]
  - DEVICE DISLOCATION [None]
  - ANAEMIA [None]
  - ECTOPIC PREGNANCY WITH INTRAUTERINE DEVICE [None]
